FAERS Safety Report 9213599 (Version 1)
Quarter: 2013Q2

REPORT INFORMATION
  Report Type: Spontaneous
  Country: US (occurrence: None)
  Receive Date: 20130404
  Receipt Date: 20130404
  Transmission Date: 20140414
  Serious: Yes (Other)
  Sender: FDA-Public Use
  Company Number: None

PATIENT
  Age: 24 Year
  Sex: Female
  Weight: 63.5 kg

DRUGS (2)
  1. EFFEXOR XR (VENLAFAXINE) [Suspect]
     Indication: ANXIETY
     Route: 048
     Dates: start: 20121004, end: 20130403
  2. EFFEXOR XR (VENLAFAXINE) [Suspect]
     Indication: DEPRESSION
     Route: 048
     Dates: start: 20121004, end: 20130403

REACTIONS (1)
  - Paraesthesia [None]
